FAERS Safety Report 18975594 (Version 1)
Quarter: 2021Q1

REPORT INFORMATION
  Report Type: Report from Study
  Country: US (occurrence: US)
  Receive Date: 20210305
  Receipt Date: 20210305
  Transmission Date: 20210420
  Serious: No
  Sender: FDA-Public Use
  Company Number: US-SUNOVION-2021SUN000563

PATIENT
  Age: 76 Year
  Sex: Female

DRUGS (2)
  1. KYNMOBI [Suspect]
     Active Substance: APOMORPHINE HYDROCHLORIDE
     Dosage: 15 MG
     Route: 060
     Dates: start: 20210224, end: 20210224
  2. KYNMOBI [Suspect]
     Active Substance: APOMORPHINE HYDROCHLORIDE
     Indication: PARKINSON^S DISEASE
     Dosage: 10 MG
     Route: 060
     Dates: start: 20210222, end: 20210222

REACTIONS (7)
  - Orthostatic hypotension [Recovered/Resolved]
  - Foreign body sensation in eyes [Unknown]
  - Hyperhidrosis [Unknown]
  - Nausea [Unknown]
  - Product taste abnormal [Unknown]
  - Feeling hot [Unknown]
  - Head discomfort [Unknown]

NARRATIVE: CASE EVENT DATE: 20210222
